FAERS Safety Report 5228397-3 (Version None)
Quarter: 2007Q1

REPORT INFORMATION
  Report Type: 
  Country: None (occurrence: None)
  Receive Date: 20070205
  Receipt Date: 20070123
  Transmission Date: 20070707
  Serious: Yes (Hospitalization, Other)
  Sender: FDA-Public Use
  Company Number: PHNU2007DE00645

PATIENT
  Sex: Male

DRUGS (1)
  1. AREDIA [Suspect]
     Indication: OSTEOPOROSIS
     Dosage: 30 MG EVERY 4 MONTHS
     Route: 042

REACTIONS (4)
  - ANGIOEDEMA [None]
  - DYSPNOEA [None]
  - HEREDITARY ANGIOEDEMA [None]
  - PHARYNGEAL OEDEMA [None]
